FAERS Safety Report 17949418 (Version 6)
Quarter: 2021Q1

REPORT INFORMATION
  Report Type: Report from Study
  Country: AR (occurrence: AR)
  Receive Date: 20200625
  Receipt Date: 20210330
  Transmission Date: 20210419
  Serious: Yes (Other)
  Sender: FDA-Public Use
  Company Number: NVSC2020AR177531

PATIENT
  Age: 78 Year
  Sex: Female

DRUGS (2)
  1. REVOLADE [Suspect]
     Active Substance: ELTROMBOPAG OLAMINE
     Dosage: 50 MG, QD (ONCE DAILY) (1 MONTH AGO)
     Route: 048
     Dates: start: 20160303
  2. REVOLADE [Suspect]
     Active Substance: ELTROMBOPAG OLAMINE
     Indication: IMMUNE THROMBOCYTOPENIA
     Dosage: 25 MG, QD (2 OF 25 MG)(1 YEAR AGO)(TABLET)
     Route: 065

REACTIONS (22)
  - Fatigue [Unknown]
  - Asthenia [Unknown]
  - Decreased immune responsiveness [Unknown]
  - Malaise [Recovered/Resolved]
  - Product availability issue [Unknown]
  - Product supply issue [Unknown]
  - Platelet count decreased [Not Recovered/Not Resolved]
  - Skin discolouration [Recovered/Resolved]
  - White blood cell count decreased [Not Recovered/Not Resolved]
  - Petechiae [Unknown]
  - Somnolence [Unknown]
  - Haemorrhage [Unknown]
  - Ear haemorrhage [Unknown]
  - Glaucoma [Unknown]
  - Confusional state [Recovered/Resolved]
  - Fear [Not Recovered/Not Resolved]
  - General physical health deterioration [Unknown]
  - Nephrocalcinosis [Not Recovered/Not Resolved]
  - Blood test abnormal [Not Recovered/Not Resolved]
  - Gait disturbance [Unknown]
  - Visual impairment [Unknown]
  - Haematoma [Unknown]

NARRATIVE: CASE EVENT DATE: 20201101
